FAERS Safety Report 24641936 (Version 1)
Quarter: 2024Q4

REPORT INFORMATION
  Report Type: Spontaneous
  Country: US (occurrence: US)
  Receive Date: 20241120
  Receipt Date: 20241120
  Transmission Date: 20250115
  Serious: Yes (Death)
  Sender: GRIFOLS
  Company Number: US-IGSA-BIG0031602

PATIENT
  Age: 65 Year
  Sex: Male
  Weight: 91 kg

DRUGS (38)
  1. PROLASTIN-C LIQUID [Suspect]
     Active Substance: .ALPHA.1-PROTEINASE INHIBITOR HUMAN
     Indication: Alpha-1 antitrypsin deficiency
     Dosage: 5230 MILLIGRAM, Q.WK.
     Route: 042
  2. VALGANCICLOVIR [Concomitant]
     Active Substance: VALGANCICLOVIR
     Dosage: 450 MILLIGRAM
  3. PREDNISONE ACETATE [Concomitant]
     Active Substance: PREDNISONE ACETATE
     Dosage: 5 MILLIGRAM
  4. FINASTERIDE [Concomitant]
     Active Substance: FINASTERIDE
     Dosage: 5 MILLIGRAM
  5. FENOFIBRATE [Concomitant]
     Active Substance: FENOFIBRATE
     Dosage: 40 MILLIGRAM
  6. NOVOLOG [Concomitant]
     Active Substance: INSULIN ASPART
  7. INSULIN DETEMIR [Concomitant]
     Active Substance: INSULIN DETEMIR
     Dosage: 100 MILLILITER
  8. GABAPENTIN [Concomitant]
     Active Substance: GABAPENTIN
     Dosage: 800 MILLIGRAM
  9. LEVOTHYROXINE SODIUM [Concomitant]
     Active Substance: LEVOTHYROXINE SODIUM
     Dosage: 137 MICROGRAM
  10. TACROLIMUS [Concomitant]
     Active Substance: TACROLIMUS
     Dosage: 0.5 MILLIGRAM
  11. TAMSULOSIN HYDROCHLORIDE [Concomitant]
     Active Substance: TAMSULOSIN HYDROCHLORIDE
     Dosage: 0.4 MILLIGRAM
  12. METOLAZONE [Concomitant]
     Active Substance: METOLAZONE
     Dosage: 0.4 MILLIGRAM
  13. DIPHENHYDRAMINE HYDROCHLORIDE [Concomitant]
     Active Substance: DIPHENHYDRAMINE HYDROCHLORIDE
     Dosage: 25 MILLIGRAM
  14. ALENDRONATE SODIUM [Concomitant]
     Active Substance: ALENDRONATE SODIUM
     Dosage: 35 MILLIGRAM
  15. ITRACONAZOLE [Concomitant]
     Active Substance: ITRACONAZOLE
     Dosage: 100 MILLIGRAM
  16. FISH OIL [Concomitant]
     Active Substance: FISH OIL
  17. ASPIRIN [Concomitant]
     Active Substance: ASPIRIN
     Dosage: 81 MILLIGRAM
  18. BACTRIM [Concomitant]
     Active Substance: SULFAMETHOXAZOLE\TRIMETHOPRIM
  19. ROSUVASTATIN [Concomitant]
     Active Substance: ROSUVASTATIN
     Dosage: 10 MILLIGRAM
  20. COLISTIN SULFATE [Concomitant]
     Active Substance: COLISTIN SULFATE
  21. CALCIUM [Concomitant]
     Active Substance: CALCIUM
  22. FUROSEMIDE [Concomitant]
     Active Substance: FUROSEMIDE
     Dosage: 20 MILLIGRAM
  23. CINNAMON + ANGELICA FORMULA [Concomitant]
     Dosage: 500 MILLIGRAM
  24. METOPROLOL TARTRATE ACCORD [Concomitant]
     Dosage: 25 MILLIGRAM
  25. SINGULAIR [Concomitant]
     Active Substance: MONTELUKAST SODIUM
     Dosage: 10 MILLIGRAM
  26. ADVAIR HFA [Concomitant]
     Active Substance: FLUTICASONE PROPIONATE\SALMETEROL XINAFOATE
  27. IPRATROPIUM BROMIDE [Concomitant]
     Active Substance: IPRATROPIUM BROMIDE
  28. ALBUTEROL SULFATE [Concomitant]
     Active Substance: ALBUTEROL SULFATE
  29. FIBER LAX [Concomitant]
     Active Substance: CALCIUM POLYCARBOPHIL
  30. ADVIL [Concomitant]
     Active Substance: IBUPROFEN
  31. SPIRIVA [Concomitant]
     Active Substance: TIOTROPIUM BROMIDE MONOHYDRATE
  32. MAGNESIUM OXIDE [Concomitant]
     Active Substance: MAGNESIUM OXIDE
     Dosage: 400 MILLIGRAM
  33. PROZAC [Concomitant]
     Active Substance: FLUOXETINE HYDROCHLORIDE
  34. POTASSIUM [Concomitant]
     Active Substance: POTASSIUM
     Dosage: 595 MILLIGRAM
  35. ALPRAZOLAM ER [Concomitant]
     Active Substance: ALPRAZOLAM
     Dosage: 25 MILLIGRAM
  36. VITAMINS [Concomitant]
     Active Substance: VITAMINS
  37. MUCINEX [Concomitant]
     Active Substance: GUAIFENESIN
  38. OSTEOFLEX [COLLAGEN;TOCOPHERYL ACETATE] [Concomitant]

REACTIONS (1)
  - Death [Fatal]

NARRATIVE: CASE EVENT DATE: 20241102
